FAERS Safety Report 4584119-0 (Version None)
Quarter: 2005Q1

REPORT INFORMATION
  Report Type: 
  Country: None (occurrence: None)
  Receive Date: 20050216
  Receipt Date: 20050204
  Transmission Date: 20050727
  Serious: Yes (Other)
  Sender: FDA-Public Use
  Company Number: JP-ROCHE-394983

PATIENT
  Age: 49 Year
  Sex: Male

DRUGS (1)
  1. TAMIFLU [Suspect]
     Indication: INFLUENZA
     Route: 048
     Dates: start: 20050203, end: 20050204

REACTIONS (3)
  - EYELID OEDEMA [None]
  - PHARYNGEAL OEDEMA [None]
  - URTICARIA [None]
